FAERS Safety Report 19936357 (Version 1)
Quarter: 2021Q4

REPORT INFORMATION
  Report Type: Spontaneous
  Country: US (occurrence: US)
  Receive Date: 20211008
  Receipt Date: 20211008
  Transmission Date: 20220303
  Serious: Yes (Death, Other)
  Sender: FDA-Public Use
  Company Number: US-MALLINCKRODT-T202104286

PATIENT
  Sex: Female
  Weight: 2 kg

DRUGS (12)
  1. INOMAX [Suspect]
     Active Substance: NITRIC OXIDE
     Indication: Cardiac failure high output
     Dosage: UNK (INHALATION)
     Route: 055
  2. INOMAX [Suspect]
     Active Substance: NITRIC OXIDE
     Indication: Newborn persistent pulmonary hypertension
  3. MILRINONE [Concomitant]
     Active Substance: MILRINONE
     Indication: Tachycardia
     Dosage: UNK
     Route: 065
  4. MILRINONE [Concomitant]
     Active Substance: MILRINONE
     Indication: Tachypnoea
  5. FUROSEMIDE [Concomitant]
     Active Substance: FUROSEMIDE
     Indication: Tachycardia
     Dosage: UNK
     Route: 065
  6. FUROSEMIDE [Concomitant]
     Active Substance: FUROSEMIDE
     Indication: Tachypnoea
  7. OXYGEN [Concomitant]
     Active Substance: OXYGEN
     Indication: Product used for unknown indication
     Dosage: UNK
     Route: 065
  8. DOPAMINE [Concomitant]
     Active Substance: DOPAMINE HYDROCHLORIDE
     Indication: Hypotension
     Dosage: UNK
     Route: 065
  9. EPINEPHRINE [Concomitant]
     Active Substance: EPINEPHRINE
     Indication: Cardiac failure high output
     Dosage: UNK
     Route: 065
  10. EPINEPHRINE [Concomitant]
     Active Substance: EPINEPHRINE
     Indication: Newborn persistent pulmonary hypertension
  11. VASOPRESSIN [Concomitant]
     Active Substance: VASOPRESSIN
     Indication: Cardiac failure high output
     Dosage: UNK
     Route: 065
  12. VASOPRESSIN [Concomitant]
     Active Substance: VASOPRESSIN
     Indication: Newborn persistent pulmonary hypertension

REACTIONS (4)
  - Multiple organ dysfunction syndrome [Fatal]
  - Subdural haematoma [Fatal]
  - Seizure [Recovering/Resolving]
  - Therapy non-responder [Unknown]
